FAERS Safety Report 8152119-X (Version None)
Quarter: 2012Q1

REPORT INFORMATION
  Report Type: 
  Country: None (occurrence: None)
  Receive Date: 20120221
  Receipt Date: 20120214
  Transmission Date: 20120608
  Serious: Yes (Other)
  Sender: FDA-Public Use
  Company Number: BR-PFIZER INC-2012009426

PATIENT
  Age: 53 Year
  Sex: Female

DRUGS (5)
  1. CYMBALTA [Concomitant]
     Dosage: 30-60 DAILY
     Dates: start: 20111005
  2. DEPAKOTE ER [Concomitant]
     Dosage: 500 MG DAILY
  3. LYRICA [Suspect]
     Indication: FIBROMYALGIA
     Dosage: 75 MG (ONE CAPSULE), 1X/DAY
     Route: 048
     Dates: start: 20020101
  4. LYRICA [Suspect]
     Indication: PAIN
     Dosage: 75 MG, 1X/DAY
     Dates: start: 20120111
  5. LYRICA [Suspect]
     Indication: GENERALISED ANXIETY DISORDER

REACTIONS (6)
  - DEPRESSION [None]
  - DRUG INEFFECTIVE [None]
  - BONE TUBERCULOSIS [None]
  - CONVULSION [None]
  - PAIN [None]
  - NO THERAPEUTIC RESPONSE [None]
